FAERS Safety Report 9530143 (Version 1)
Quarter: 2013Q3

REPORT INFORMATION
  Report Type: Spontaneous
  Country: US (occurrence: US)
  Receive Date: 20130917
  Receipt Date: 20130917
  Transmission Date: 20140515
  Serious: Yes (Hospitalization)
  Sender: FDA-Public Use
  Company Number: US-SUCAMPO PHARMA AMERICAS, INC-SPI201300651

PATIENT
  Age: 78 Year
  Sex: Female

DRUGS (6)
  1. AMITIZA [Suspect]
     Indication: CONSTIPATION
     Dosage: 8 MCG, BID
     Route: 048
     Dates: start: 201109, end: 201305
  2. AMITIZA [Suspect]
     Dosage: 8 MCG, QD EVERY NIGHT
     Route: 048
     Dates: start: 201305
  3. UNKNOWN COPD MEDICATION [Concomitant]
     Indication: CHRONIC OBSTRUCTIVE PULMONARY DISEASE
     Dosage: UNK
  4. UNKNOWN STOOL SOFTENER [Concomitant]
     Indication: CONSTIPATION
     Dosage: Q AM PRN
  5. UNKNOWN STOOL SOFTENER [Concomitant]
     Dosage: Q HS
  6. LAXATIVES [Concomitant]
     Indication: CONSTIPATION
     Dosage: Q AM PRN

REACTIONS (3)
  - Constipation [Recovered/Resolved]
  - Underdose [Recovered/Resolved]
  - Diarrhoea [Recovered/Resolved]
